FAERS Safety Report 9226004 (Version 1)
Quarter: 2013Q1

REPORT INFORMATION
  Report Type: Spontaneous
  Country: US (occurrence: None)
  Receive Date: 20120921
  Receipt Date: 20120921
  Transmission Date: 20140127
  Serious: Yes (Other)
  Sender: FDA-Public Use
  Company Number: WAES1108USA00729

PATIENT
  Sex: Female

DRUGS (2)
  1. TAB VYTORIN 10-80 MG [Suspect]
     Indication: BLOOD CHOLESTEROL
     Dosage: 10-80 MG/UNK/PO
     Route: 048
  2. NIACIN [Concomitant]

REACTIONS (1)
  - Rhabdomyolysis [None]
